FAERS Safety Report 24467725 (Version 1)
Quarter: 2024Q4

REPORT INFORMATION
  Report Type: Report from Study
  Country: US (occurrence: US)
  Receive Date: 20241018
  Receipt Date: 20241018
  Transmission Date: 20250114
  Serious: No
  Sender: ROCHE
  Company Number: US-ROCHE-3577414

PATIENT
  Age: 21 Year
  Sex: Female

DRUGS (22)
  1. XOLAIR [Suspect]
     Active Substance: OMALIZUMAB
     Indication: Urticaria
     Route: 065
  2. XOLAIR [Suspect]
     Active Substance: OMALIZUMAB
     Indication: Psoriasis
  3. LIDOCAINE [Concomitant]
     Active Substance: LIDOCAINE
  4. MIRALAX [Concomitant]
     Active Substance: POLYETHYLENE GLYCOL 3350
  5. HYDROXYZINE [Concomitant]
     Active Substance: HYDROXYZINE HYDROCHLORIDE
  6. FLUCONAZOLE [Concomitant]
     Active Substance: FLUCONAZOLE
  7. ZOFRAN [Concomitant]
     Active Substance: ONDANSETRON HYDROCHLORIDE
  8. FLUTICASONE PROPIONATE [Concomitant]
     Active Substance: FLUTICASONE PROPIONATE
  9. GABAPENTIN [Concomitant]
     Active Substance: GABAPENTIN
  10. CELEBREX [Concomitant]
     Active Substance: CELECOXIB
  11. LEVOMEFOLIC ACID [Concomitant]
     Active Substance: LEVOMEFOLIC ACID
  12. BREO ELLIPTA [Concomitant]
     Active Substance: FLUTICASONE FUROATE\VILANTEROL TRIFENATATE
  13. CETIRIZINE HYDROCHLORIDE [Concomitant]
     Active Substance: CETIRIZINE HYDROCHLORIDE
  14. SYNTHROID [Concomitant]
     Active Substance: LEVOTHYROXINE SODIUM
  15. XOPENEX [Concomitant]
     Active Substance: LEVALBUTEROL HYDROCHLORIDE
  16. SPIRONOLACTONE [Concomitant]
     Active Substance: SPIRONOLACTONE
  17. SYMBICORT [Concomitant]
     Active Substance: BUDESONIDE\FORMOTEROL FUMARATE DIHYDRATE
  18. MONTELUKAST [Concomitant]
     Active Substance: MONTELUKAST
  19. ORTHO TRI CYCLEN [Concomitant]
     Active Substance: ETHINYL ESTRADIOL\NORGESTIMATE
  20. KETOCONAZOLE [Concomitant]
     Active Substance: KETOCONAZOLE
  21. TRETINOIN [Concomitant]
     Active Substance: TRETINOIN
  22. BACTRIM DS [Concomitant]
     Active Substance: SULFAMETHOXAZOLE\TRIMETHOPRIM

REACTIONS (2)
  - Off label use [Unknown]
  - No adverse event [Unknown]
